FAERS Safety Report 6690806-0 (Version None)
Quarter: 2010Q2

REPORT INFORMATION
  Report Type: 
  Country: None (occurrence: None)
  Receive Date: 20100421
  Receipt Date: 20100412
  Transmission Date: 20101027
  Serious: Yes (Death, Hospitalization, Disabling, Other)
  Sender: FDA-Public Use
  Company Number: US-PURDUE-USA-2010-0043282

PATIENT
  Sex: Female

DRUGS (19)
  1. DILAUDID-HP [Suspect]
     Indication: PAIN
     Dosage: UNK
     Dates: start: 20071124
  2. HEPARIN SODIUM [Suspect]
     Indication: DRUG USE FOR UNKNOWN INDICATION
  3. PLAVIX [Concomitant]
  4. LASIX [Concomitant]
  5. ASPIRIN [Concomitant]
  6. ATENOLOL [Concomitant]
  7. NORCO [Concomitant]
  8. IMDUR [Concomitant]
  9. LOPID [Concomitant]
  10. PRINIVIL                           /00894001/ [Concomitant]
  11. NIFEDICAL [Concomitant]
  12. NOVOLIN N [Concomitant]
  13. NITROGLYCERIN [Concomitant]
  14. LIDOCAINE                          /00033402/ [Concomitant]
  15. KEFLEX                             /00145501/ [Concomitant]
  16. RENAGEL                            /01459901/ [Concomitant]
  17. STOOL SOFTENER [Concomitant]
  18. SENSIPAR [Concomitant]
  19. OMEPRAZOLE [Concomitant]

REACTIONS (13)
  - ABASIA [None]
  - ACTIVITIES OF DAILY LIVING IMPAIRED [None]
  - CARDIAC ARREST [None]
  - COMA [None]
  - DEATH [None]
  - DYSGRAPHIA [None]
  - FLUID INTAKE REDUCED [None]
  - HYPOPHAGIA [None]
  - MOVEMENT DISORDER [None]
  - OVERDOSE [None]
  - READING DISORDER [None]
  - SPEECH DISORDER [None]
  - VISUAL IMPAIRMENT [None]
